FAERS Safety Report 7957004-1 (Version None)
Quarter: 2011Q4

REPORT INFORMATION
  Report Type: 
  Country: None (occurrence: None)
  Receive Date: 20111205
  Receipt Date: 20111205
  Transmission Date: 20120403
  Serious: Yes (Hospitalization, Disabling)
  Sender: FDA-Public Use
  Company Number: None

PATIENT
  Age: 78 Year
  Sex: Male
  Weight: 81.646 kg

DRUGS (1)
  1. DORZOLAMIDE HCL OPHTHALMIC [Suspect]
     Indication: GLAUCOMA
     Dosage: 1 DROP
     Dates: start: 20110913, end: 20111203

REACTIONS (3)
  - EYE PAIN [None]
  - SCAB [None]
  - SKIN DISORDER [None]
